FAERS Safety Report 4586896-1 (Version None)
Quarter: 2005Q1

REPORT INFORMATION
  Report Type: 
  Country: None (occurrence: None)
  Receive Date: 20050218
  Receipt Date: 20050208
  Transmission Date: 20050727
  Serious: Yes (Hospitalization)
  Sender: FDA-Public Use
  Company Number: AU-ROCHE-394786

PATIENT
  Age: 73 Year
  Sex: Male

DRUGS (4)
  1. MYCOPHENOLATE MOFETIL [Suspect]
     Indication: PYODERMA GANGRENOSUM
     Route: 065
  2. PREDNISONE [Concomitant]
     Indication: SARCOIDOSIS
  3. TRIAMCINOLONE [Concomitant]
     Route: 026
  4. PENICILLIN [Concomitant]
     Route: 042

REACTIONS (5)
  - ACUTE MYOCARDIAL INFARCTION [None]
  - ARTHRALGIA [None]
  - CULTURE POSITIVE [None]
  - PSEUDOMONAS INFECTION [None]
  - STAPHYLOCOCCAL SEPSIS [None]
